FAERS Safety Report 4370991-6 (Version None)
Quarter: 2004Q2

REPORT INFORMATION
  Report Type: 
  Country: None (occurrence: None)
  Receive Date: 20040601
  Receipt Date: 20040520
  Transmission Date: 20050107
  Serious: Yes (Death)
  Sender: FDA-Public Use
  Company Number: 200408912

PATIENT
  Age: 67 Year
  Sex: Female

DRUGS (3)
  1. STREPTOKINASE (STREPTOKINASE) (AVENTIS BEHRING) [Suspect]
     Indication: MYOCARDIAL INFARCTION
     Dosage: 1.5 MIU DAILY IV
     Route: 042
     Dates: start: 20031226, end: 20031226
  2. ASPIRIN [Suspect]
     Indication: MYOCARDIAL INFARCTION
     Dosage: 325 MG DAILY PO
     Route: 048
     Dates: start: 20031226, end: 20031226
  3. ENOXAPARIN OR PLACEBO VS. HEPARIN OR PLACEBO [Suspect]
     Indication: MYOCARDIAL INFARCTION
     Dosage: IV
     Route: 042
     Dates: start: 20031226, end: 20031226

REACTIONS (8)
  - CARDIOGENIC SHOCK [None]
  - CONVULSION [None]
  - CORONARY ARTERY OCCLUSION [None]
  - ELECTROMECHANICAL DISSOCIATION [None]
  - HYPOTENSION [None]
  - MYOCARDIAL RUPTURE [None]
  - PERICARDIAL EFFUSION [None]
  - PERICARDIAL HAEMORRHAGE [None]
